FAERS Safety Report 8383615-8 (Version None)
Quarter: 2012Q2

REPORT INFORMATION
  Report Type: 
  Country: None (occurrence: None)
  Receive Date: 20120524
  Receipt Date: 20120523
  Transmission Date: 20120825
  Serious: No
  Sender: FDA-Public Use
  Company Number: US-PFIZER INC-2012125136

PATIENT
  Sex: Male
  Weight: 119 kg

DRUGS (9)
  1. METFORMIN [Concomitant]
     Indication: DIABETES MELLITUS
     Dosage: 1 TABLET OF 1000 MG IN MORNING, HALF OF 1000 MG TABLET IN EVENING AND 1 TABLET OF 1000 MG AT NIGHT
  2. LYRICA [Suspect]
     Indication: HYPOAESTHESIA
  3. HYDROCODONE [Concomitant]
     Indication: PAIN
     Dosage: 10/500 MG, 3X/DAY
  4. LYRICA [Suspect]
     Indication: PARAESTHESIA
  5. LYRICA [Suspect]
     Indication: PAIN
  6. CYMBALTA [Concomitant]
     Indication: NEUROPATHY PERIPHERAL
     Dosage: 60 MG, 1X/DAY
  7. GLYBURIDE [Concomitant]
     Indication: DIABETES MELLITUS
     Dosage: 2.5 MG, 3X/DAY
  8. LYRICA [Suspect]
     Indication: NEUROPATHY PERIPHERAL
     Dosage: 75 MG, 2X/DAY
     Dates: start: 20120301, end: 20120501
  9. RISPERDAL [Concomitant]
     Indication: PARKINSONISM
     Dosage: 4 MG, 3X/DAY

REACTIONS (3)
  - PAIN IN EXTREMITY [None]
  - HYPOAESTHESIA [None]
  - PARAESTHESIA [None]
